FAERS Safety Report 6391740-6 (Version None)
Quarter: 2009Q4

REPORT INFORMATION
  Report Type: 
  Country: None (occurrence: None)
  Receive Date: 20091007
  Receipt Date: 20090819
  Transmission Date: 20100525
  Serious: No
  Sender: FDA-Public Use
  Company Number: US-BAYER-200930792NA

PATIENT
  Age: 23 Year
  Sex: Female
  Weight: 104 kg

DRUGS (1)
  1. MIRENA [Suspect]
     Indication: CONTRACEPTION
     Dosage: CONTINUOUS
     Route: 015
     Dates: start: 20080801, end: 20090818

REACTIONS (8)
  - ABDOMINAL PAIN [None]
  - BACK PAIN [None]
  - DEPRESSION [None]
  - DYSPAREUNIA [None]
  - MENORRHAGIA [None]
  - MOOD SWINGS [None]
  - RASH MACULAR [None]
  - WEIGHT INCREASED [None]
